FAERS Safety Report 7933659-2 (Version None)
Quarter: 2011Q4

REPORT INFORMATION
  Report Type: 
  Country: None (occurrence: None)
  Receive Date: 20111122
  Receipt Date: 20111110
  Transmission Date: 20120403
  Serious: Yes (Other)
  Sender: FDA-Public Use
  Company Number: PHHY2011US099518

PATIENT
  Age: 61 Year
  Sex: Male

DRUGS (3)
  1. RITUXIMAB [Concomitant]
     Dosage: 375 MG/M2, FOUR WEEKLY DOSES
  2. OCTREOTIDE ACETATE [Suspect]
     Indication: GASTROINTESTINAL HYPOMOTILITY
  3. CYCLOPHOSPHAMIDE [Concomitant]
     Dosage: 430 MG/M2, WITH FIRST AND SECOND DOSES OF RITUXIMAB

REACTIONS (4)
  - GASTROINTESTINAL MOTILITY DISORDER [None]
  - LYMPHOCYTIC INFILTRATION [None]
  - HYPERPLASIA [None]
  - AUTOIMMUNE NEUROPATHY [None]
